FAERS Safety Report 9257695 (Version 2)
Quarter: 2014Q1

REPORT INFORMATION
  Report Type: Spontaneous
  Country: US (occurrence: None)
  Receive Date: 20121212
  Receipt Date: 20130314
  Transmission Date: 20141002
  Serious: No
  Sender: FDA-Public Use
  Company Number: 1208USA012139

PATIENT
  Age: 50 Year
  Sex: Female

DRUGS (3)
  1. VICTRELIS (BOCEPREVIR) CAPSULE [Suspect]
     Indication: HEPATITIS C
     Dates: start: 20120717
  2. RIBAVIRIN (RIBAVIRIN) CAPSULE [Suspect]
     Indication: HEPATITIS C
     Dosage: 3 IN THE EVENING AND 3 IN THE MORNING
     Dates: start: 20120619, end: 201209
  3. PEGASYS [Suspect]
     Indication: HEPATITIS C
     Dates: start: 20120619

REACTIONS (13)
  - Insomnia [None]
  - Fatigue [None]
  - Anxiety [None]
  - Dyspnoea [None]
  - Dry mouth [None]
  - Stomatitis [None]
  - Blood glucose decreased [None]
  - Nausea [None]
  - Asthenia [None]
  - Headache [None]
  - Heart rate increased [None]
  - Blood count abnormal [None]
  - Anaemia [None]
